FAERS Safety Report 21669252 (Version 1)
Quarter: 2022Q4

REPORT INFORMATION
  Report Type: Report from Study
  Country: US (occurrence: US)
  Receive Date: 20221201
  Receipt Date: 20221201
  Transmission Date: 20230113
  Serious: No
  Sender: FDA-Public Use
  Company Number: US-ABBVIE-4186030

PATIENT
  Sex: Male

DRUGS (1)
  1. MAVYRET [Suspect]
     Active Substance: GLECAPREVIR\PIBRENTASVIR
     Indication: Chronic hepatitis C
     Dosage: TIME INTERVAL: 0.33333333 DAYS: 100-40MG TAKE 3 TABLETS BY MOUTH ONCE DAILY
     Route: 048

REACTIONS (3)
  - Headache [Recovered/Resolved]
  - Adverse drug reaction [Unknown]
  - Product dose omission in error [Recovered/Resolved]
